FAERS Safety Report 5051366-3 (Version None)
Quarter: 2006Q3

REPORT INFORMATION
  Report Type: 
  Country: None (occurrence: None)
  Receive Date: 20060710
  Receipt Date: 20060627
  Transmission Date: 20061208
  Serious: Yes (Hospitalization)
  Sender: FDA-Public Use
  Company Number: 2006061755

PATIENT
  Sex: 0

DRUGS (2)
  1. DETROL LA [Suspect]
     Indication: ILL-DEFINED DISORDER
     Dosage: 2 MG (2 MG), ORAL
     Route: 048
  2. DEPAKOTE [Suspect]
     Indication: ILL-DEFINED DISORDER

REACTIONS (1)
  - DRUG LEVEL INCREASED [None]
